FAERS Safety Report 11944367 (Version 2)
Quarter: 2016Q1

REPORT INFORMATION
  Report Type: Report from Study
  Country: NL (occurrence: NL)
  Receive Date: 20160125
  Receipt Date: 20160127
  Transmission Date: 20160526
  Serious: Yes (Hospitalization)
  Sender: FDA-Public Use
  Company Number: NL-ROCHE-1698121

PATIENT
  Age: 59 Year
  Sex: Female

DRUGS (13)
  1. CLEMASTINE [Concomitant]
     Active Substance: CLEMASTINE
     Route: 042
     Dates: start: 20151215, end: 20151215
  2. BEVACIZUMAB [Suspect]
     Active Substance: BEVACIZUMAB
     Indication: BREAST CANCER METASTATIC
     Route: 042
     Dates: start: 20151208, end: 20151222
  3. OXYCODON [Concomitant]
     Active Substance: OXYCODONE
     Dosage: 4 TIMES DAILY AS REQUIRED?SINCE 11/NOV/2015, 20 MILLIGRAM PER DAY
     Route: 065
     Dates: start: 20151113
  4. HYDROCHLOROTHIAZIDE. [Concomitant]
     Active Substance: HYDROCHLOROTHIAZIDE
     Route: 065
     Dates: start: 20151210, end: 20151218
  5. PANTOPRAZOL [Concomitant]
     Active Substance: PANTOPRAZOLE SODIUM
     Dosage: SINCE 29/DEC/2015 20 MG PER DAY
     Route: 065
  6. PACLITAXEL. [Suspect]
     Active Substance: PACLITAXEL
     Indication: BREAST CANCER METASTATIC
     Route: 042
     Dates: start: 20151201, end: 20151222
  7. MACROGOL [Concomitant]
     Active Substance: POLYETHYLENE GLYCOLS
     Dosage: SINCE 17/DEC/2015, 1 DOSAGE FORMS PER DAY
     Route: 065
  8. NADROPARINE [Concomitant]
     Active Substance: NADROPARIN
     Route: 065
     Dates: start: 20151213, end: 20151218
  9. METOCLOPRAMIDE. [Concomitant]
     Active Substance: METOCLOPRAMIDE
     Dosage: SINCE 13/DEC/2015, 10MG, 3 TIMES A DAY AS REQUIRED
     Route: 065
     Dates: start: 20151227, end: 20151228
  10. PARACETAMOL [Concomitant]
     Active Substance: ACETAMINOPHEN
     Dosage: 1000 MG,4 IN 1 DAY
     Route: 065
     Dates: start: 20151113
  11. DEXAMETHASON [Concomitant]
     Active Substance: DEXAMETHASONE
     Route: 065
     Dates: start: 20151206
  12. MACROGOL [Concomitant]
     Active Substance: POLYETHYLENE GLYCOLS
     Route: 065
     Dates: start: 20151217
  13. LACTULOSE. [Concomitant]
     Active Substance: LACTULOSE
     Dosage: 670 MG/ML, 10 ML
     Route: 065
     Dates: start: 20151130

REACTIONS (2)
  - Hypophosphataemia [Recovered/Resolved]
  - Hypercalcaemia [Recovered/Resolved]

NARRATIVE: CASE EVENT DATE: 20151227
